FAERS Safety Report 23612895 (Version 2)
Quarter: 2024Q1

REPORT INFORMATION
  Report Type: Report from Study
  Country: AT (occurrence: AT)
  Receive Date: 20240308
  Receipt Date: 20240314
  Transmission Date: 20240410
  Serious: Yes (Other)
  Sender: FDA-Public Use
  Company Number: AT-PFM-2024-01465

PATIENT
  Age: 74 Year
  Sex: Female
  Weight: 59 kg

DRUGS (12)
  1. ENCORAFENIB [Suspect]
     Active Substance: ENCORAFENIB
     Indication: Malignant melanoma
     Dosage: 450 MG
     Route: 048
     Dates: start: 20211223, end: 20240108
  2. BINIMETINIB [Suspect]
     Active Substance: BINIMETINIB
     Indication: Malignant melanoma
     Dosage: 45 MG, BID (2/DAY)
     Route: 048
     Dates: start: 20211223, end: 20240108
  3. PANTOPRAZOLE SODIUM [Concomitant]
     Active Substance: PANTOPRAZOLE SODIUM
     Indication: Prophylaxis
     Dosage: UNK
     Route: 065
  4. PRAMIPEXOLE [Concomitant]
     Active Substance: PRAMIPEXOLE\PRAMIPEXOLE DIHYDROCHLORIDE
     Dosage: UNK
     Route: 065
  5. BISOPROLOL FUMARATE [Concomitant]
     Active Substance: BISOPROLOL FUMARATE
     Dosage: UNK
     Route: 065
  6. ACETAMINOPHEN [Concomitant]
     Active Substance: ACETAMINOPHEN
     Indication: Abdominal pain
     Dosage: UNK
     Route: 065
     Dates: start: 20220101, end: 20220101
  7. ACETAMINOPHEN [Concomitant]
     Active Substance: ACETAMINOPHEN
     Indication: Nausea
     Dosage: UNK
     Route: 065
     Dates: start: 20220409
  8. COMIRNATY (TOZINAMERAN) [Concomitant]
     Active Substance: TOZINAMERAN
     Dosage: UNK
     Route: 065
     Dates: start: 20220930
  9. MOTILIUM [Concomitant]
     Active Substance: DOMPERIDONE
     Indication: Nausea
     Dosage: UNK
     Route: 065
     Dates: start: 20220413, end: 20220509
  10. MOTILIUM [Concomitant]
     Active Substance: DOMPERIDONE
     Indication: Vomiting
  11. POLIDOCANOL\UREA [Concomitant]
     Active Substance: POLIDOCANOL\UREA
     Indication: Xerosis
     Dosage: UNK
     Route: 065
     Dates: start: 20220902
  12. PREGABALIN [Concomitant]
     Active Substance: PREGABALIN
     Indication: Oedema peripheral
     Dosage: UNK
     Route: 065
     Dates: start: 202302

REACTIONS (5)
  - Acquired hypertrophy of the retinal pigment epithelium [Not Recovered/Not Resolved]
  - Cataract [Not Recovered/Not Resolved]
  - Choroidal haemangioma [Not Recovered/Not Resolved]
  - Subretinal fluid [Recovered/Resolved]
  - Retinal disorder [Not Recovered/Not Resolved]

NARRATIVE: CASE EVENT DATE: 20220201
